FAERS Safety Report 16228424 (Version 1)
Quarter: 2019Q2

REPORT INFORMATION
  Report Type: Spontaneous
  Country: US (occurrence: US)
  Receive Date: 20190318
  Receipt Date: 20190318
  Transmission Date: 20190711
  Serious: Yes (Hospitalization)
  Sender: FDA-Public Use
  Company Number: None

PATIENT
  Age: 79 Year
  Sex: Male

DRUGS (1)
  1. CHLORTHALIDONE. [Suspect]
     Active Substance: CHLORTHALIDONE
     Indication: HYPERTENSION
     Route: 048
     Dates: start: 20190212, end: 20190222

REACTIONS (5)
  - Extrasystoles [None]
  - Palpitations [None]
  - Bradyarrhythmia [None]
  - Hypokalaemia [None]
  - Bradycardia [None]

NARRATIVE: CASE EVENT DATE: 20190222
